FAERS Safety Report 11254348 (Version 2)
Quarter: 2015Q3

REPORT INFORMATION
  Report Type: Spontaneous
  Country: US (occurrence: US)
  Receive Date: 20150709
  Receipt Date: 20150709
  Transmission Date: 20151125
  Serious: Yes (Other)
  Sender: FDA-Public Use
  Company Number: US-MPIJNJ-2012-02195

PATIENT
  Sex: Male
  Weight: 82.99 kg

DRUGS (1)
  1. VELCADE [Suspect]
     Active Substance: BORTEZOMIB
     Indication: PLASMA CELL MYELOMA
     Dosage: 1 MG, CYCLIC
     Route: 042

REACTIONS (2)
  - Infusion site discolouration [Recovered/Resolved]
  - Peripheral swelling [Recovered/Resolved]
